FAERS Safety Report 25867100 (Version 1)
Quarter: 2025Q4

REPORT INFORMATION
  Report Type: Spontaneous
  Country: US (occurrence: US)
  Receive Date: 20251001
  Receipt Date: 20251001
  Transmission Date: 20260118
  Serious: No
  Sender: ASTELLAS
  Company Number: US-ASTELLAS-2025-AER-054039

PATIENT
  Age: 15 Year

DRUGS (2)
  1. CRESEMBA [Suspect]
     Active Substance: ISAVUCONAZONIUM SULFATE
     Indication: Antifungal prophylaxis
     Dosage: 372 MILLIGRAM, QD
     Route: 050
     Dates: start: 20250222, end: 20250414
  2. CRESEMBA [Suspect]
     Active Substance: ISAVUCONAZONIUM SULFATE
     Indication: Evidence based treatment
     Dosage: 186 MG DAILY VIA INTRAVENOUS ROUTE
     Route: 050
     Dates: start: 20250415, end: 20250506

REACTIONS (1)
  - Off label use [Unknown]

NARRATIVE: CASE EVENT DATE: 20250222
